FAERS Safety Report 24359285 (Version 2)
Quarter: 2025Q2

REPORT INFORMATION
  Report Type: Spontaneous
  Country: US (occurrence: US)
  Receive Date: 20240924
  Receipt Date: 20250522
  Transmission Date: 20250717
  Serious: No
  Sender: SANOFI AVENTIS
  Company Number: US-SA-2024SA271749

PATIENT
  Sex: Female
  Weight: 61.224 kg

DRUGS (1)
  1. DUPIXENT [Suspect]
     Active Substance: DUPILUMAB
     Indication: Eosinophilic oesophagitis
     Dosage: 300 MG, QW
     Route: 058

REACTIONS (4)
  - Vision blurred [Recovering/Resolving]
  - Condition aggravated [Recovering/Resolving]
  - Accidental exposure to product [Unknown]
  - Exposure via skin contact [Unknown]
